FAERS Safety Report 4769135-8 (Version None)
Quarter: 2005Q3

REPORT INFORMATION
  Report Type: 
  Country: None (occurrence: None)
  Receive Date: 20050907
  Receipt Date: 20050408
  Transmission Date: 20060218
  Serious: Yes (Other)
  Sender: FDA-Public Use
  Company Number: 1524

PATIENT
  Age: 29 Year
  Sex: Female

DRUGS (3)
  1. AMNESTEEM [Suspect]
     Indication: ACNE
     Dosage: 20MG, THEN 40MG, QD, PO
     Route: 048
     Dates: start: 20040930, end: 20050406
  2. BIRTH CONTROL PATCH [Concomitant]
  3. PROGESTERONE IUD [Concomitant]

REACTIONS (1)
  - DRUG EXPOSURE DURING PREGNANCY [None]
